FAERS Safety Report 7290949-7 (Version None)
Quarter: 2011Q1

REPORT INFORMATION
  Report Type: 
  Country: None (occurrence: None)
  Receive Date: 20110214
  Receipt Date: 20110204
  Transmission Date: 20110831
  Serious: Yes (Hospitalization, Other)
  Sender: FDA-Public Use
  Company Number: IN-BRISTOL-MYERS SQUIBB COMPANY-14240790

PATIENT
  Age: 17 Year
  Sex: Female

DRUGS (16)
  1. RANITIDINE [Concomitant]
     Dates: start: 20080503
  2. PARACETAMOL [Concomitant]
     Dosage: ALSO GIVEN: FROM 9-MAR-08 TO 13-MAR-08
     Dates: start: 20080612, end: 20080616
  3. AMOXICILLIN AND CLAVULANATE POTASSIUM [Concomitant]
     Dates: start: 20080309, end: 20080513
  4. AMOXICILLIN [Concomitant]
     Dates: start: 20080624
  5. ABATACEPT [Suspect]
     Indication: GLOMERULONEPHRITIS PROLIFERATIVE
     Dosage: NO OF COURSES:03
     Route: 042
     Dates: start: 20080515, end: 20080612
  6. MYCOPHENOLATE MOFETIL [Concomitant]
     Dates: start: 20080503
  7. FUROSEMIDE [Concomitant]
  8. FERROUS SULFATE TAB [Concomitant]
     Dates: start: 20080507
  9. PANTOPRAZOLE [Concomitant]
  10. ENALAPRIL MALEATE [Concomitant]
  11. LOSARTAN POTASSIUM [Concomitant]
  12. FOLIC ACID [Concomitant]
  13. PREDNISOLONE [Concomitant]
     Dates: start: 20080503
  14. CIPROFLOXACIN [Concomitant]
     Dates: start: 20080616, end: 20080623
  15. LEVOTHYROXINE SODIUM [Concomitant]
  16. METOPROLOL [Concomitant]

REACTIONS (5)
  - VASCULITIS CEREBRAL [None]
  - CONVULSION [None]
  - HERPES ZOSTER [None]
  - PNEUMONITIS [None]
  - CARDIAC FAILURE CONGESTIVE [None]
